FAERS Safety Report 15879132 (Version 1)
Quarter: 2019Q1

REPORT INFORMATION
  Report Type: Report from Study
  Country: CA (occurrence: CA)
  Receive Date: 20190128
  Receipt Date: 20190128
  Transmission Date: 20190417
  Serious: Yes (Other)
  Sender: FDA-Public Use
  Company Number: CA-TEVA-2019-CA-1004746

PATIENT
  Age: 46 Year
  Sex: Female

DRUGS (4)
  1. ADVAIR HFA [Suspect]
     Active Substance: FLUTICASONE PROPIONATE\SALMETEROL XINAFOATE
     Indication: ASTHMA
     Route: 065
  2. MEPOLIZUMAB [Suspect]
     Active Substance: MEPOLIZUMAB
     Indication: ASTHMA
     Route: 042
  3. PREDNISONE. [Suspect]
     Active Substance: PREDNISONE
     Indication: PRODUCT USED FOR UNKNOWN INDICATION
     Route: 065
  4. VENTOLIN [Suspect]
     Active Substance: ALBUTEROL SULFATE
     Indication: ASTHMA
     Route: 065

REACTIONS (17)
  - Dyspnoea [Recovering/Resolving]
  - Nasal disorder [Recovering/Resolving]
  - Rhinitis [Recovering/Resolving]
  - Chest discomfort [Recovering/Resolving]
  - Hypoventilation [Recovering/Resolving]
  - Drug ineffective [Recovering/Resolving]
  - Respiratory tract infection [Recovering/Resolving]
  - Throat tightness [Recovering/Resolving]
  - Obstructive airways disorder [Recovering/Resolving]
  - Productive cough [Recovering/Resolving]
  - Respiratory disorder [Recovering/Resolving]
  - Wheezing [Recovering/Resolving]
  - Condition aggravated [Recovering/Resolving]
  - Cough [Recovering/Resolving]
  - Nasopharyngitis [Recovering/Resolving]
  - Night sweats [Recovering/Resolving]
  - Sputum discoloured [Recovering/Resolving]
